FAERS Safety Report 17698948 (Version 4)
Quarter: 2020Q2

REPORT INFORMATION
  Report Type: Report from Study
  Country: None (occurrence: ES)
  Receive Date: 20200423
  Receipt Date: 20200516
  Transmission Date: 20200714
  Serious: Yes (Hospitalization, Other)
  Sender: FDA-Public Use
  Company Number: ES-ABBVIE-20K-144-3375303-00

PATIENT
  Age: 82 Year
  Sex: Female

DRUGS (1)
  1. DUODOPA [Suspect]
     Active Substance: CARBIDOPA\LEVODOPA
     Indication: PARKINSON^S DISEASE
     Route: 050
     Dates: start: 20140710

REACTIONS (2)
  - Pneumonia [Recovered/Resolved]
  - Coronavirus test positive [Recovered/Resolved]

NARRATIVE: CASE EVENT DATE: 20200419
